FAERS Safety Report 9527792 (Version 1)
Quarter: 2013Q1

REPORT INFORMATION
  Report Type: Spontaneous
  Country: US (occurrence: None)
  Receive Date: 20130314
  Receipt Date: 20130314
  Transmission Date: 20140127
  Serious: No
  Sender: FDA-Public Use
  Company Number: 1208USA004260

PATIENT
  Age: 51 Year
  Sex: Female

DRUGS (3)
  1. VICTRELIS [Suspect]
     Dosage: 800 MG, TID
     Dates: start: 201204
  2. PEGINTRON [Suspect]
     Dosage: 120 MCG, QW
     Dates: start: 201204
  3. RIBAPAK (RIBAVIRIN) [Concomitant]

REACTIONS (3)
  - Red blood cell count decreased [None]
  - Dysgeusia [None]
  - Asthenia [None]
